FAERS Safety Report 8785704 (Version 1)
Quarter: 2012Q4

REPORT INFORMATION
  Report Type: Report from Study
  Country: CA (occurrence: CA)
  Receive Date: 20120914
  Receipt Date: 20120914
  Transmission Date: 20130627
  Serious: Yes (Other)
  Sender: FDA-Public Use
  Company Number: CA-JNJFOC-20120902221

PATIENT
  Sex: Male

DRUGS (3)
  1. REMICADE [Suspect]
     Indication: ANKYLOSING SPONDYLITIS
     Route: 042
  2. ALL OTHER THERAPEUTIC DRUGS [Concomitant]
     Indication: PROSTATIC DISORDER
     Route: 065
  3. ANTI HYPERTENSIVE MEDICATION [Concomitant]
     Indication: HYPERTENSION
     Route: 065

REACTIONS (2)
  - Skin cancer [Recovered/Resolved]
  - Wound infection [Recovered/Resolved]
